FAERS Safety Report 6161052-4 (Version None)
Quarter: 2009Q2

REPORT INFORMATION
  Report Type: 
  Country: None (occurrence: None)
  Receive Date: 20090420
  Receipt Date: 20090408
  Transmission Date: 20091009
  Serious: Yes (Hospitalization)
  Sender: FDA-Public Use
  Company Number: AU-PFIZER INC-2009150373

PATIENT

DRUGS (14)
  1. MARAVIROC [Suspect]
     Indication: HIV INFECTION
     Dosage: 300 MG, 2X/DAY
     Route: 048
     Dates: start: 20050216
  2. COMBIVIR [Suspect]
     Dosage: 1 TABLET, 2X/DAY
     Route: 048
     Dates: start: 20050216
  3. TENOFOVIR [Suspect]
     Route: 048
     Dates: start: 20050216
  4. BACTRIM DS [Concomitant]
     Dosage: UNK
     Route: 048
     Dates: start: 19940501
  5. VALACICLOVIR [Concomitant]
     Dosage: UNK
     Route: 048
     Dates: start: 20010926
  6. ALENDRONATE SODIUM [Concomitant]
     Route: 048
     Dates: start: 20040414
  7. PAROXETINE HYDROCHLORIDE [Concomitant]
     Dosage: UNK
     Route: 048
     Dates: start: 20000201
  8. RAMIPRIL [Concomitant]
     Dosage: UNK
     Route: 048
     Dates: start: 20081009
  9. TIMENTIN [Concomitant]
     Route: 042
     Dates: start: 20081113, end: 20081211
  10. LACTULOSE [Concomitant]
     Route: 048
     Dates: start: 20081120, end: 20081120
  11. NULYTELY [Concomitant]
  12. SODIUM BICARBONATE/SODIUM CHLORIDE [Concomitant]
     Route: 048
     Dates: start: 20081122, end: 20081122
  13. CEPHALEXIN [Concomitant]
     Dosage: UNK
     Route: 048
     Dates: start: 20081211
  14. ENFUVIRTIDE [Concomitant]
     Dosage: UNK
     Route: 058
     Dates: start: 20050216

REACTIONS (1)
  - NEUROPATHIC ULCER [None]
